FAERS Safety Report 7418869-5 (Version None)
Quarter: 2011Q2

REPORT INFORMATION
  Report Type: 
  Country: None (occurrence: None)
  Receive Date: 20110415
  Receipt Date: 20110411
  Transmission Date: 20111010
  Serious: No
  Sender: FDA-Public Use
  Company Number: US-PFIZER INC-2011047313

PATIENT
  Sex: Female
  Weight: 89 kg

DRUGS (7)
  1. PREMARIN [Suspect]
     Indication: VULVOVAGINAL PRURITUS
     Dosage: UNK
     Route: 067
     Dates: start: 20110201, end: 20110201
  2. OMEPRAZOLE [Concomitant]
     Dosage: 40 MG, UNK
  3. HYDROCODONE [Concomitant]
     Dosage: 500 MG, UNK
  4. METFORMIN [Concomitant]
     Dosage: 500 MG, 2X/DAY
  5. ACETYLSALICYLIC ACID [Concomitant]
     Dosage: UNK
  6. HYDROCHLOROTHIAZIDE [Concomitant]
     Dosage: 25 MG, DAILY
  7. GLIPIZIDE [Concomitant]
     Dosage: 5 MG, DAILY

REACTIONS (1)
  - DRUG INEFFECTIVE [None]
